FAERS Safety Report 19263856 (Version 2)
Quarter: 2021Q3

REPORT INFORMATION
  Report Type: Spontaneous
  Country: US (occurrence: US)
  Receive Date: 20210517
  Receipt Date: 20210816
  Transmission Date: 20211014
  Serious: Yes (Life-Threatening, Hospitalization, Other)
  Sender: FDA-Public Use
  Company Number: US-LUPIN PHARMACEUTICALS INC.-2021-06907

PATIENT
  Age: 37 Year
  Sex: Male

DRUGS (4)
  1. SEVELAMER CARBONATE. [Suspect]
     Active Substance: SEVELAMER CARBONATE
     Indication: BLOOD PHOSPHORUS INCREASED
     Dosage: UNK
     Route: 065
  2. LOKELMA [Concomitant]
     Active Substance: SODIUM ZIRCONIUM CYCLOSILICATE
     Indication: HYPERKALAEMIA
     Dosage: UNK
     Route: 065
  3. REMDESIVIR. [Concomitant]
     Active Substance: REMDESIVIR
     Indication: COVID-19 PNEUMONIA
     Dosage: UNK
     Route: 065
  4. KAYEXALATE [Concomitant]
     Active Substance: SODIUM POLYSTYRENE SULFONATE
     Indication: ACUTE KIDNEY INJURY
     Dosage: UNK
     Route: 065

REACTIONS (5)
  - Pneumoperitoneum [Unknown]
  - Large intestinal ulcer [Unknown]
  - Renal failure [Unknown]
  - Gastrointestinal haemorrhage [Unknown]
  - Large intestine perforation [Unknown]
